FAERS Safety Report 23950404 (Version 1)
Quarter: 2024Q2

REPORT INFORMATION
  Report Type: Spontaneous
  Country: FR (occurrence: FR)
  Receive Date: 20240607
  Receipt Date: 20240607
  Transmission Date: 20240716
  Serious: Yes (Other)
  Sender: FDA-Public Use
  Company Number: None

PATIENT
  Age: 84 Year
  Sex: Male
  Weight: 75 kg

DRUGS (1)
  1. LEVOFLOXACIN [Suspect]
     Active Substance: LEVOFLOXACIN
     Indication: Amputation
     Route: 048
     Dates: start: 20180926

REACTIONS (2)
  - Electrocardiogram QT prolonged [Unknown]
  - Confusional state [Unknown]

NARRATIVE: CASE EVENT DATE: 20180927
